FAERS Safety Report 13459074 (Version 1)
Quarter: 2017Q2

REPORT INFORMATION
  Report Type: Spontaneous
  Country: JP (occurrence: JP)
  Receive Date: 20170419
  Receipt Date: 20170419
  Transmission Date: 20170830
  Serious: Yes (Life-Threatening, Other)
  Sender: FDA-Public Use
  Company Number: JP-SUN PHARMACEUTICAL INDUSTRIES LTD-2017RR-138311

PATIENT
  Age: 47 Year
  Sex: Male

DRUGS (6)
  1. GEMCITABINE [Suspect]
     Active Substance: GEMCITABINE\GEMCITABINE HYDROCHLORIDE
     Indication: DERMATOFIBROSARCOMA PROTUBERANS METASTATIC
     Dosage: UNK
     Route: 065
  2. IFOSFAMIDE. [Suspect]
     Active Substance: IFOSFAMIDE
     Indication: DERMATOFIBROSARCOMA PROTUBERANS METASTATIC
     Dosage: TWO COURSES
     Route: 065
  3. DOXORUBICIN [Suspect]
     Active Substance: DOXORUBICIN
     Indication: DERMATOFIBROSARCOMA PROTUBERANS METASTATIC
     Dosage: TWO COURSES
     Route: 065
  4. DACARBAZINE. [Suspect]
     Active Substance: DACARBAZINE
     Indication: DERMATOFIBROSARCOMA PROTUBERANS METASTATIC
     Dosage: TWO COURSES
     Route: 065
  5. MESNA. [Suspect]
     Active Substance: MESNA
     Indication: DERMATOFIBROSARCOMA PROTUBERANS METASTATIC
     Dosage: TWO COURSES
     Route: 065
  6. DOCETAXEL. [Suspect]
     Active Substance: DOCETAXEL
     Indication: DERMATOFIBROSARCOMA PROTUBERANS METASTATIC
     Dosage: UNK
     Route: 065

REACTIONS (1)
  - Drug resistance [Unknown]
